FAERS Safety Report 5930944-0 (Version None)
Quarter: 2008Q4

REPORT INFORMATION
  Report Type: 
  Country: None (occurrence: None)
  Receive Date: 20081002
  Receipt Date: 20080604
  Transmission Date: 20090506
  Serious: Yes (Hospitalization)
  Sender: FDA-Public Use
  Company Number: 2007-0011032

PATIENT
  Age: 45 Year
  Sex: Male
  Weight: 59.4212 kg

DRUGS (6)
  1. TRUVADA [Suspect]
     Indication: HIV INFECTION
     Dosage: 1 DOSAGE FORMS, 1 IN 1 D, ORAL
     Route: 048
     Dates: start: 20051229, end: 20061228
  2. KALETRA [Suspect]
     Indication: HIV INFECTION
     Dosage: 2 DOSAGE FORMS, 2 IN 1 D, ORAL
     Route: 048
     Dates: start: 20051229, end: 20061228
  3. PAXIL [Concomitant]
  4. PROSCAR [Concomitant]
  5. VISTARIL (HYDROXYZINE HYDROCHLORIDE) [Concomitant]
  6. PREVACID [Concomitant]

REACTIONS (1)
  - RENAL FAILURE ACUTE [None]
